FAERS Safety Report 4309418-9 (Version None)
Quarter: 2004Q1

REPORT INFORMATION
  Report Type: 
  Country: None (occurrence: None)
  Receive Date: 20040301
  Receipt Date: 20040213
  Transmission Date: 20041129
  Serious: Yes (Other)
  Sender: FDA-Public Use
  Company Number: S04-CAN-00582-01

PATIENT
  Age: 25 Year
  Sex: Female

DRUGS (6)
  1. CELEXA [Suspect]
     Indication: OBSESSIVE-COMPULSIVE DISORDER
     Dosage: 60 MG QD PO
     Route: 048
     Dates: start: 20030101, end: 20031218
  2. CELEXA [Suspect]
     Indication: OBSESSIVE-COMPULSIVE DISORDER
     Dosage: 40 MG QD PO
     Route: 048
     Dates: start: 20031219
  3. CELEXA [Suspect]
     Indication: OBSESSIVE-COMPULSIVE DISORDER
     Dosage: 40 MG QD PO
     Route: 048
     Dates: start: 20030101, end: 20030101
  4. CELEXA [Suspect]
     Indication: OBSESSIVE-COMPULSIVE DISORDER
     Dosage: 20 MG QD PO
     Route: 048
     Dates: start: 20021201, end: 20030101
  5. CELEXA [Suspect]
     Indication: OBSESSIVE-COMPULSIVE DISORDER
     Dosage: 10 MG QD PO
     Route: 048
     Dates: start: 20021201, end: 20021201
  6. ALESSE [Suspect]
     Indication: ORAL CONTRACEPTION
     Dosage: 100 MG QD PO
     Route: 048
     Dates: start: 20000101, end: 20030905

REACTIONS (3)
  - AMENORRHOEA [None]
  - ANOVULATORY CYCLE [None]
  - MENSTRUATION IRREGULAR [None]
